FAERS Safety Report 8967933 (Version 1)
Quarter: 2012Q4

REPORT INFORMATION
  Report Type: 
  Country: US (occurrence: US)
  Receive Date: 20121217
  Receipt Date: 20121217
  Transmission Date: 20130627
  Serious: Yes (Other)
  Sender: FDA-Public Use
  Company Number: US-COVIDIEN/TYCO HEALTHCARE/MALLINCKRODT-T201204331

PATIENT
  Age: 38 Week
  Sex: Female

DRUGS (4)
  1. FENTANYL CITRATE [Suspect]
     Indication: SPINAL ANAESTHESIA
     Dosage: 25 mcg, UNK
     Route: 008
  2. BUPIVACAINE [Suspect]
     Indication: EPIDURAL ANALGESIA
     Dosage: 2.5 mg, UNK
     Route: 037
  3. LACTATED RINGER^S [Concomitant]
     Dosage: 1000 ml, UNK
  4. LIDOCAINE HYDROCHLORIDE/EPINEPHRINE [Concomitant]
     Dosage: 3 ml, 1.5% lidocaine with 1:200,000 epinephrine (15 mcg)
     Route: 008

REACTIONS (2)
  - Foetal exposure during pregnancy [Recovered/Resolved]
  - Bradycardia foetal [Recovered/Resolved]
